FAERS Safety Report 4632630-6 (Version None)
Quarter: 2005Q2

REPORT INFORMATION
  Report Type: 
  Country: None (occurrence: None)
  Receive Date: 20050331
  Receipt Date: 20040813
  Transmission Date: 20051028
  Serious: Yes (Other)
  Sender: FDA-Public Use
  Company Number: 200414000BCC

PATIENT
  Age: 63 Year
  Sex: Male
  Weight: 108.8633 kg

DRUGS (2)
  1. ALEVE [Suspect]
     Indication: ARTHRALGIA
     Dosage: 440 MG, BID, ORAL
     Route: 048
  2. ALEVE [Suspect]
     Indication: SHOULDER PAIN
     Dosage: 440 MG, BID, ORAL
     Route: 048

REACTIONS (1)
  - GASTRIC ULCER [None]
